FAERS Safety Report 6254895-X (Version None)
Quarter: 2009Q3

REPORT INFORMATION
  Report Type: 
  Country: None (occurrence: None)
  Receive Date: 20090702
  Receipt Date: 20090625
  Transmission Date: 20100115
  Serious: Yes (Hospitalization)
  Sender: FDA-Public Use
  Company Number: FR-AVENTIS-200912393FR

PATIENT
  Age: 92 Year
  Sex: Female

DRUGS (12)
  1. LASILIX FAIBLE [Suspect]
     Route: 048
     Dates: end: 20090202
  2. CORDARONE [Suspect]
     Route: 048
     Dates: end: 20090202
  3. COUMADIN [Suspect]
     Indication: PROPHYLAXIS
     Dosage: DOSE: 2 MG ALTERNATED WITH 1 MG
     Route: 048
  4. COTAREG [Suspect]
     Indication: ESSENTIAL HYPERTENSION
     Route: 048
     Dates: end: 20090202
  5. ALDACTONE [Suspect]
     Route: 048
     Dates: end: 20090202
  6. HEMIGOXINE NATIVELLE [Suspect]
     Route: 048
     Dates: end: 20090202
  7. ADANCOR [Suspect]
     Route: 048
     Dates: end: 20090202
  8. DISCOTRINE [Suspect]
     Indication: PROPHYLAXIS
     Route: 062
     Dates: end: 20090202
  9. SINGULAIR [Concomitant]
     Indication: DRUG USE FOR UNKNOWN INDICATION
     Route: 048
  10. NEXIUM [Concomitant]
     Indication: DRUG USE FOR UNKNOWN INDICATION
  11. TEMESTA                            /00273201/ [Concomitant]
     Indication: DRUG USE FOR UNKNOWN INDICATION
     Route: 048
  12. SERETIDE [Concomitant]
     Indication: DRUG USE FOR UNKNOWN INDICATION
     Route: 055

REACTIONS (2)
  - HAEMATOMA [None]
  - MULTIPLE DRUG OVERDOSE [None]
